FAERS Safety Report 13999440 (Version 1)
Quarter: 2017Q3

REPORT INFORMATION
  Report Type: Spontaneous
  Country: IN (occurrence: IN)
  Receive Date: 20170922
  Receipt Date: 20170922
  Transmission Date: 20171128
  Serious: Yes (Hospitalization, Other)
  Sender: FDA-Public Use
  Company Number: IN-IMPAX LABORATORIES, INC-2017-IPXL-02716

PATIENT
  Age: 7 Year
  Sex: Male

DRUGS (11)
  1. PHENOBARBITONE [Suspect]
     Active Substance: PHENOBARBITAL
     Indication: STATUS EPILEPTICUS
     Dosage: 6 MG/KG, DAILY
     Route: 065
  2. PHENYTOIN. [Suspect]
     Active Substance: PHENYTOIN
     Indication: STATUS EPILEPTICUS
     Dosage: 6 MG/KG, DAILY
     Route: 065
  3. PHENOBARBITONE [Suspect]
     Active Substance: PHENOBARBITAL
     Dosage: TAPERED DOSE, UNK
     Route: 065
  4. DIVALPROEX SODIUM ER [Suspect]
     Active Substance: DIVALPROEX SODIUM
     Dosage: 40 MG/KG, DAILY
     Route: 065
  5. DIVALPROEX SODIUM ER [Suspect]
     Active Substance: DIVALPROEX SODIUM
     Indication: STATUS EPILEPTICUS
     Dosage: 20 MG/KG, DAILY
     Route: 065
  6. ZONISAMIDE. [Suspect]
     Active Substance: ZONISAMIDE
     Dosage: TAPERED DOSE, UNK
     Route: 065
  7. DIVALPROEX SODIUM ER [Suspect]
     Active Substance: DIVALPROEX SODIUM
     Dosage: TAPERED DOSE, UNK
     Route: 065
  8. LEVETIRACETAM. [Suspect]
     Active Substance: LEVETIRACETAM
     Indication: STATUS EPILEPTICUS
     Dosage: 60 MG/KG, DAILY
     Route: 065
  9. CLOBAZAM [Suspect]
     Active Substance: CLOBAZAM
     Indication: STATUS EPILEPTICUS
     Dosage: 10 MG, DAILY
     Route: 065
  10. PHENYTOIN. [Suspect]
     Active Substance: PHENYTOIN
     Dosage: TAPERED DOSE, UNK
     Route: 065
  11. ZONISAMIDE. [Suspect]
     Active Substance: ZONISAMIDE
     Indication: STATUS EPILEPTICUS
     Dosage: 400 MG, DAILY
     Route: 065

REACTIONS (7)
  - Muscle spasticity [Not Recovered/Not Resolved]
  - Pneumonia [Recovered/Resolved]
  - Product use issue [Unknown]
  - Encephalitis viral [Recovering/Resolving]
  - Cognitive disorder [Not Recovered/Not Resolved]
  - Drug ineffective [Unknown]
  - Drug administered to patient of inappropriate age [Unknown]
